FAERS Safety Report 5273009-6 (Version None)
Quarter: 2007Q1

REPORT INFORMATION
  Report Type: 
  Country: None (occurrence: None)
  Receive Date: 20070322
  Receipt Date: 20070313
  Transmission Date: 20070707
  Serious: Yes (Other)
  Sender: FDA-Public Use
  Company Number: IE-PFIZER INC-2006090166

PATIENT
  Sex: Female
  Weight: 69.9 kg

DRUGS (1)
  1. CARDURA XL (EXTENDED RELEASE) [Suspect]
     Indication: HYPERTENSION
     Route: 048

REACTIONS (5)
  - DIARRHOEA [None]
  - HEADACHE [None]
  - NAUSEA [None]
  - VISION BLURRED [None]
  - VISUAL ACUITY REDUCED [None]
